FAERS Safety Report 4510245-8 (Version None)
Quarter: 2004Q4

REPORT INFORMATION
  Report Type: 
  Country: None (occurrence: None)
  Receive Date: 20041119
  Receipt Date: 20041029
  Transmission Date: 20050328
  Serious: Yes (Congenital Anomaly)
  Sender: FDA-Public Use
  Company Number: EWC041141251

PATIENT
  Age: 1 Day
  Sex: Male

DRUGS (7)
  1. FLUOXETINE [Suspect]
     Dates: start: 20040525
  2. XANOR (ALPRAZOLAM DUM) [Concomitant]
  3. IMOVANE (ZOPICLONE) [Concomitant]
  4. STESOLID (DIAZEPAM) [Concomitant]
  5. PAROXETINE HCL [Concomitant]
  6. LERGIGAN (PROMETHAZINE HYDROCHLORIDE) [Concomitant]
  7. LOSEC (OMEPRAZOLE MAGNESIUM) [Concomitant]

REACTIONS (4)
  - DRUG EXPOSURE DURING PREGNANCY [None]
  - HAEMANGIOMA CONGENITAL [None]
  - LARGE FOR DATES BABY [None]
  - TREMOR NEONATAL [None]
